FAERS Safety Report 15192217 (Version 2)
Quarter: 2018Q4

REPORT INFORMATION
  Report Type: Report from Study
  Country: US (occurrence: US)
  Receive Date: 20180724
  Receipt Date: 20181210
  Transmission Date: 20190204
  Serious: Yes (Hospitalization, Other)
  Sender: FDA-Public Use
  Company Number: US-SHIRE-US201827680

PATIENT
  Sex: Female

DRUGS (1)
  1. HUMAN IMMUNOGLOBULIN; HYALURONIDASE [Suspect]
     Active Substance: HUMAN IMMUNOGLOBULIN G\HYALURONIDASE RECOMBINANT HUMAN
     Indication: IMMUNODEFICIENCY COMMON VARIABLE
     Dosage: 50 G, 1X A MONTH
     Route: 058

REACTIONS (11)
  - Spinal fracture [Unknown]
  - Pain [Unknown]
  - Gait disturbance [Unknown]
  - Clostridium difficile colitis [Unknown]
  - Weight increased [Unknown]
  - Rash [Unknown]
  - Immunoglobulins decreased [Unknown]
  - Haemorrhage [Unknown]
  - Chest injury [Unknown]
  - Back injury [Unknown]
  - Gastritis [Recovering/Resolving]
